FAERS Safety Report 20683696 (Version 2)
Quarter: 2022Q2

REPORT INFORMATION
  Report Type: Spontaneous
  Country: JP (occurrence: JP)
  Receive Date: 20220407
  Receipt Date: 20220415
  Transmission Date: 20220721
  Serious: Yes (Life-Threatening, Other)
  Sender: FDA-Public Use
  Company Number: JP-MLMSERVICE-20220325-3448234-2

PATIENT
  Age: 53 Year
  Sex: Female
  Weight: 50 kg

DRUGS (3)
  1. PACLITAXEL [Suspect]
     Active Substance: PACLITAXEL
     Indication: Metastases to pleura
     Dosage: 175 MG/M2, EVERY 3 WEEKS
     Route: 041
     Dates: start: 20180308
  2. TOPOTECAN [Suspect]
     Active Substance: TOPOTECAN HYDROCHLORIDE
     Indication: Squamous cell carcinoma
     Dosage: 0.75 MG/M2, EVERY 3 WEEKS
     Route: 041
     Dates: start: 20180308
  3. BEVACIZUMAB [Suspect]
     Active Substance: BEVACIZUMAB
     Indication: Squamous cell carcinoma
     Dosage: 15 MG/KG EVERY 3 WEEKS, CUMULATIVE DOSE: 8 CYCLE
     Route: 042
     Dates: start: 20180308, end: 201807

REACTIONS (2)
  - Neutropenia [Recovered/Resolved]
  - Proteinuria [Recovered/Resolved]

NARRATIVE: CASE EVENT DATE: 20180711
